FAERS Safety Report 10093182 (Version 1)
Quarter: 2014Q2

REPORT INFORMATION
  Report Type: Spontaneous
  Country: US (occurrence: US)
  Receive Date: 20140421
  Receipt Date: 20140421
  Transmission Date: 20141212
  Serious: No
  Sender: FDA-Public Use
  Company Number: US-SANOFI-AVENTIS-2013SA054493

PATIENT
  Age: 69 Year
  Sex: Female
  Weight: 66 kg

DRUGS (4)
  1. ALLEGRA [Suspect]
     Indication: HYPERSENSITIVITY
     Dosage: SINCE ABOUT A WEEK
     Route: 048
     Dates: start: 20130515, end: 20130601
  2. VITAMINS [Concomitant]
  3. FISH OIL [Concomitant]
  4. ASPIRIN [Concomitant]

REACTIONS (2)
  - Somnolence [Unknown]
  - Drug ineffective [Unknown]
